FAERS Safety Report 25288092 (Version 1)
Quarter: 2025Q2

REPORT INFORMATION
  Report Type: Spontaneous
  Country: SE (occurrence: SE)
  Receive Date: 20250509
  Receipt Date: 20250509
  Transmission Date: 20250717
  Serious: Yes (Other)
  Sender: AZURITY PHARMACEUTICALS
  Company Number: SE-AZURITY PHARMACEUTICALS, INC.-AZR202504-001272

PATIENT
  Sex: Female

DRUGS (1)
  1. IVERMECTIN [Suspect]
     Active Substance: IVERMECTIN
     Indication: Myiasis
     Route: 065

REACTIONS (2)
  - Seizure [Not Recovered/Not Resolved]
  - Off label use [Unknown]
